FAERS Safety Report 4852894-3 (Version None)
Quarter: 2005Q4

REPORT INFORMATION
  Report Type: 
  Country: None (occurrence: None)
  Receive Date: 20051212
  Receipt Date: 20051124
  Transmission Date: 20060501
  Serious: Yes (Other)
  Sender: FDA-Public Use
  Company Number: 2005BI021580

PATIENT
  Age: 49 Year
  Sex: Male

DRUGS (10)
  1. ZEVALIN [Suspect]
     Indication: NON-HODGKIN'S LYMPHOMA
     Dosage: 1X; IV
     Route: 042
     Dates: start: 20050113, end: 20050113
  2. ZEVALIN [Suspect]
     Indication: NON-HODGKIN'S LYMPHOMA
     Dosage: 0.4 MCI/KG/ 1X; IV
     Route: 042
     Dates: start: 20050120, end: 20050120
  3. RITUXIMAB [Concomitant]
  4. RITUXIMAB [Concomitant]
  5. PARACETAMOL [Concomitant]
  6. DEXCHLORPHENIRAMINE [Concomitant]
  7. CALCIGRAN [Concomitant]
  8. VALPROATE SODIUM [Concomitant]
  9. IBUPROFEN [Concomitant]
  10. PINEXFORTE [Concomitant]

REACTIONS (1)
  - PROCTITIS ULCERATIVE [None]
